FAERS Safety Report 6958773-X (Version None)
Quarter: 2010Q3

REPORT INFORMATION
  Report Type: 
  Country: None (occurrence: None)
  Receive Date: 20100831
  Receipt Date: 20100727
  Transmission Date: 20110219
  Serious: Yes (Death)
  Sender: FDA-Public Use
  Company Number: PHHY2010US55649

PATIENT
  Sex: Female

DRUGS (1)
  1. GLEEVEC [Suspect]
     Dosage: 200 MG MON, WED AND FRI AND 100 MG ON TUES, THURS, SAT AND SUN
     Route: 048
     Dates: start: 20080327

REACTIONS (1)
  - DEATH [None]
